FAERS Safety Report 7110242-2 (Version None)
Quarter: 2010Q4

REPORT INFORMATION
  Report Type: 
  Country: None (occurrence: None)
  Receive Date: 20101118
  Receipt Date: 20101110
  Transmission Date: 20110411
  Serious: Yes (Life-Threatening)
  Sender: FDA-Public Use
  Company Number: JP-SANOFI-AVENTIS-2010SA056362

PATIENT
  Age: 81 Year
  Sex: Male

DRUGS (11)
  1. PLAVIX [Suspect]
     Route: 048
     Dates: start: 20100730, end: 20100811
  2. 8-HOUR BAYER [Concomitant]
     Route: 048
     Dates: start: 20100730
  3. TAKEPRON [Concomitant]
     Indication: ULCER
     Route: 048
     Dates: start: 20100730
  4. PIMOBENDAN [Concomitant]
     Indication: CARDIAC FAILURE
     Route: 048
     Dates: start: 20100809, end: 20100812
  5. HEPARIN [Concomitant]
     Route: 042
     Dates: start: 20100730
  6. MEROPENEM [Concomitant]
     Indication: PNEUMONIA
     Route: 042
     Dates: start: 20100809, end: 20100811
  7. MEROPENEM [Concomitant]
     Indication: PYREXIA
     Route: 042
     Dates: start: 20100809, end: 20100811
  8. DIPRIVAN [Concomitant]
     Indication: MECHANICAL VENTILATION
     Dosage: 200 MG-400 MG
     Route: 042
     Dates: start: 20100731, end: 20100811
  9. MIDAZOLAM HCL [Concomitant]
     Indication: MECHANICAL VENTILATION
     Dosage: 20 MG-40 MG
     Route: 042
     Dates: start: 20100801, end: 20100811
  10. LIDOCAINE HYDROCHLORIDE IN PLASTIC CONTAINER [Concomitant]
     Indication: BRADYCARDIA
     Route: 042
     Dates: start: 20100730, end: 20100806
  11. PANSPORIN [Concomitant]
     Indication: INFECTION
     Route: 042
     Dates: start: 20100730, end: 20100809

REACTIONS (3)
  - HEPATIC FUNCTION ABNORMAL [None]
  - JAUNDICE [None]
  - PYREXIA [None]
